FAERS Safety Report 22050933 (Version 3)
Quarter: 2023Q2

REPORT INFORMATION
  Report Type: Spontaneous
  Country: US (occurrence: US)
  Receive Date: 20230301
  Receipt Date: 20230412
  Transmission Date: 20230721
  Serious: No
  Sender: FDA-Public Use
  Company Number: US-MYLANLABS-2023M1020479

PATIENT
  Sex: Female
  Weight: 65.77 kg

DRUGS (1)
  1. EPIPEN [Suspect]
     Active Substance: EPINEPHRINE
     Indication: Allergy prophylaxis
     Dosage: UNK
     Route: 065

REACTIONS (2)
  - Liquid product physical issue [Unknown]
  - Product quality issue [Unknown]
